FAERS Safety Report 10636024 (Version 1)
Quarter: 2014Q4

REPORT INFORMATION
  Report Type: Spontaneous
  Country: US (occurrence: US)
  Receive Date: 20141205
  Receipt Date: 20141205
  Transmission Date: 20150529
  Serious: Yes (Other)
  Sender: FDA-Public Use
  Company Number: US-ACTAVIS-2014-25861

PATIENT
  Sex: Male
  Weight: 77 kg

DRUGS (5)
  1. OXYCODONE HYDROCHLORIDE (AELLC) [Suspect]
     Active Substance: OXYCODONE HYDROCHLORIDE
     Indication: PRODUCT USED FOR UNKNOWN INDICATION
     Dosage: UNK, UNKNOWN
     Route: 065
  2. ADVIL (MEFENAMIC ACID) [Suspect]
     Active Substance: MEFENAMIC ACID
     Indication: INSOMNIA
  3. LYRICA [Suspect]
     Active Substance: PREGABALIN
     Indication: PRODUCT USED FOR UNKNOWN INDICATION
     Route: 065
  4. IBUPROFEN. [Concomitant]
     Active Substance: IBUPROFEN
     Indication: PRODUCT USED FOR UNKNOWN INDICATION
     Route: 065
  5. ADVIL (MEFENAMIC ACID) [Suspect]
     Active Substance: MEFENAMIC ACID
     Indication: PAIN
     Dosage: 2 TABLETS OF 200MG AT NIGHT
     Route: 065

REACTIONS (4)
  - Dysuria [Unknown]
  - Renal failure [Unknown]
  - Drug ineffective [Unknown]
  - Blood viscosity decreased [Unknown]
